FAERS Safety Report 19380894 (Version 1)
Quarter: 2021Q2

REPORT INFORMATION
  Report Type: Spontaneous
  Country: JP (occurrence: JP)
  Receive Date: 20210607
  Receipt Date: 20210607
  Transmission Date: 20210717
  Serious: Yes (Other)
  Sender: FDA-Public Use
  Company Number: JP-GLAXOSMITHKLINE-JP2021116786

PATIENT
  Age: 70 Year
  Sex: Female

DRUGS (1)
  1. ZOVIRAX [Suspect]
     Active Substance: ACYCLOVIR
     Dosage: 400 MG, QD

REACTIONS (3)
  - Off label use [Unknown]
  - Leukaemia [Recovered/Resolved]
  - Incorrect product administration duration [Unknown]
